FAERS Safety Report 9683874 (Version 1)
Quarter: 2013Q4

REPORT INFORMATION
  Report Type: Spontaneous
  Country: US (occurrence: None)
  Receive Date: 20131111
  Receipt Date: 20131111
  Transmission Date: 20140711
  Serious: Yes (Congenital Anomaly)
  Sender: FDA-Public Use
  Company Number: None

PATIENT
  Age: 35 Year
  Sex: Female
  Weight: 56.7 kg

DRUGS (2)
  1. RANITIDINE [Suspect]
     Indication: GASTROOESOPHAGEAL REFLUX DISEASE
     Dosage: FOR ACID REFLUX PREGNANCY TWICE DAILY TAKEN BY MOUTH
     Dates: start: 20101101, end: 20110720
  2. RANITIDINE [Suspect]
     Dosage: FOR ACID REFLUX PREGNANCY TWICE DAILY TAKEN BY MOUTH
     Dates: start: 20101101, end: 20110720

REACTIONS (4)
  - Congenital eye disorder [None]
  - Developmental delay [None]
  - Heart disease congenital [None]
  - Blindness congenital [None]
